FAERS Safety Report 17484450 (Version 1)
Quarter: 2020Q1

REPORT INFORMATION
  Report Type: Spontaneous
  Country: KR (occurrence: KR)
  Receive Date: 20200302
  Receipt Date: 20200302
  Transmission Date: 20200409
  Serious: Yes (Hospitalization)
  Sender: FDA-Public Use
  Company Number: KR-PURACAP PHARMACEUTICAL LLC-2020EPC00082

PATIENT
  Age: 60 Year
  Sex: Male

DRUGS (1)
  1. ALLOPURINOL. [Suspect]
     Active Substance: ALLOPURINOL
     Indication: HYPERURICAEMIA
     Dosage: UNK
     Route: 065

REACTIONS (5)
  - Cytomegalovirus infection [Unknown]
  - Drug reaction with eosinophilia and systemic symptoms [Unknown]
  - Immune reconstitution inflammatory syndrome [Unknown]
  - Herpes simplex [Unknown]
  - Epstein-Barr virus infection [Unknown]
